FAERS Safety Report 4320666-4 (Version None)
Quarter: 2004Q1

REPORT INFORMATION
  Report Type: 
  Country: None (occurrence: None)
  Receive Date: 20040315
  Receipt Date: 20030723
  Transmission Date: 20041129
  Serious: Yes (Hospitalization, Disabling)
  Sender: FDA-Public Use
  Company Number: USA030742161

PATIENT
  Age: 58 Year
  Sex: Male

DRUGS (5)
  1. GEMZAR [Suspect]
     Indication: METASTATIC NEOPLASM
     Dates: start: 20030709
  2. NORVASC [Concomitant]
  3. METOPROLOL [Concomitant]
  4. TAXOL [Concomitant]
  5. LOVENOX [Concomitant]

REACTIONS (2)
  - CEREBROVASCULAR ACCIDENT [None]
  - HEADACHE [None]
